FAERS Safety Report 8912145 (Version 4)
Quarter: 2013Q1

REPORT INFORMATION
  Report Type: Spontaneous
  Country: US (occurrence: US)
  Receive Date: 20121115
  Receipt Date: 20130123
  Transmission Date: 20140127
  Serious: Yes (Hospitalization, Other)
  Sender: FDA-Public Use
  Company Number: US-009507513-1211USA005400

PATIENT
  Sex: 0

DRUGS (1)
  1. FOSAMAX [Suspect]
     Indication: OSTEOPENIA
     Dosage: 70 MG, QW
     Route: 048
     Dates: start: 2006, end: 20120704

REACTIONS (10)
  - Femur fracture [Not Recovered/Not Resolved]
  - Intramedullary rod insertion [Unknown]
  - Anaemia [Unknown]
  - Hyperglycaemia [Unknown]
  - Appendicectomy [Unknown]
  - Breast lump removal [Unknown]
  - Cataract operation [Unknown]
  - Atrial fibrillation [Unknown]
  - Panic disorder [Unknown]
  - Cerumen impaction [Recovered/Resolved]
